FAERS Safety Report 18928929 (Version 11)
Quarter: 2023Q1

REPORT INFORMATION
  Report Type: Spontaneous
  Country: US (occurrence: US)
  Receive Date: 20210223
  Receipt Date: 20230109
  Transmission Date: 20230418
  Serious: Yes (Hospitalization, Other)
  Sender: FDA-Public Use
  Company Number: US-PFIZER INC-2021064376

PATIENT
  Age: 78 Year
  Sex: Female
  Weight: 67.13 kg

DRUGS (3)
  1. XELJANZ [Suspect]
     Active Substance: TOFACITINIB CITRATE
     Indication: Colitis ulcerative
     Dosage: 5 MG, 2X/DAY
     Dates: start: 202012
  2. XELJANZ [Suspect]
     Active Substance: TOFACITINIB CITRATE
     Dosage: 10 MG, 2X/DAY
     Route: 048
  3. XELJANZ [Suspect]
     Active Substance: TOFACITINIB CITRATE
     Dosage: 5 MG, 2X/DAY IN THE MORNING AND AT NIGHT
     Route: 048
     Dates: start: 2021

REACTIONS (23)
  - Condition aggravated [Not Recovered/Not Resolved]
  - Joint injury [Recovered/Resolved]
  - Squamous cell carcinoma of skin [Unknown]
  - Constipation [Not Recovered/Not Resolved]
  - Faecaloma [Unknown]
  - Illness [Not Recovered/Not Resolved]
  - Fatigue [Not Recovered/Not Resolved]
  - Weight decreased [Not Recovered/Not Resolved]
  - Asthenia [Not Recovered/Not Resolved]
  - Gait disturbance [Not Recovered/Not Resolved]
  - Nausea [Not Recovered/Not Resolved]
  - Malaise [Not Recovered/Not Resolved]
  - Peripheral swelling [Not Recovered/Not Resolved]
  - Fall [Unknown]
  - Weight increased [Recovered/Resolved]
  - Feeling hot [Not Recovered/Not Resolved]
  - Paraesthesia [Not Recovered/Not Resolved]
  - Affective disorder [Unknown]
  - Abdominal pain upper [Unknown]
  - Pancreatic cyst [Unknown]
  - Oedema peripheral [Unknown]
  - Blood alkaline phosphatase increased [Unknown]
  - Cough [Unknown]

NARRATIVE: CASE EVENT DATE: 20210101
